FAERS Safety Report 4487628-8 (Version None)
Quarter: 2004Q4

REPORT INFORMATION
  Report Type: 
  Country: None (occurrence: None)
  Receive Date: 20041027
  Receipt Date: 20041027
  Transmission Date: 20050328
  Serious: Yes (Hospitalization)
  Sender: FDA-Public Use
  Company Number: None

PATIENT
  Age: 82 Year
  Sex: Male
  Weight: 63.5036 kg

DRUGS (1)
  1. COUMADIN [Suspect]
     Indication: ATRIAL FLUTTER
     Dosage: 5 MG PO ORAL
     Route: 048
     Dates: start: 20040720, end: 20040818

REACTIONS (7)
  - BLOOD ALBUMIN DECREASED [None]
  - BLOOD URINE PRESENT [None]
  - FALL [None]
  - HEAD INJURY [None]
  - INSOMNIA [None]
  - INTERNATIONAL NORMALISED RATIO INCREASED [None]
  - LIMB INJURY [None]
